FAERS Safety Report 8152096 (Version 2)
Quarter: 2013Q1

REPORT INFORMATION
  Report Type: Spontaneous
  Country: US (occurrence: US)
  Receive Date: 20110922
  Receipt Date: 20130218
  Transmission Date: 20140127
  Serious: Yes (Other)
  Sender: FDA-Public Use
  Company Number: US-ASTRAZENECA-2011SE12617

PATIENT
  Age: 29 Year
  Sex: Male
  Weight: 195 kg

DRUGS (6)
  1. SEROQUEL [Suspect]
     Dosage: 25 TO 400 MG BID
     Route: 048
     Dates: start: 20060330, end: 20061030
  2. IBUPROFEN [Concomitant]
     Indication: PAIN
     Dosage: PO Q6HOURS PRN
     Route: 048
     Dates: start: 20060322, end: 20060607
  3. PAROXETINE [Concomitant]
     Dates: start: 20060322, end: 20061030
  4. PAROXETINE [Concomitant]
     Dates: start: 20060322, end: 20061031
  5. GEODON [Concomitant]
     Dates: start: 20060322, end: 20060414
  6. ZOLPIDEM [Concomitant]
     Dates: start: 20060411, end: 20060411

REACTIONS (4)
  - Pancreatitis [Unknown]
  - Diabetic coma [Unknown]
  - Diabetic ketoacidosis [Unknown]
  - Type 2 diabetes mellitus [Unknown]
